FAERS Safety Report 23560446 (Version 2)
Quarter: 2024Q2

REPORT INFORMATION
  Report Type: Spontaneous
  Country: JP (occurrence: JP)
  Receive Date: 20240223
  Receipt Date: 20240401
  Transmission Date: 20240715
  Serious: Yes (Death, Hospitalization)
  Sender: FDA-Public Use
  Company Number: JP-Eisai-EC-2024-160127

PATIENT
  Age: 7 Decade
  Sex: Female

DRUGS (6)
  1. LENVIMA [Suspect]
     Active Substance: LENVATINIB
     Indication: Endometrial cancer
     Route: 048
     Dates: start: 20220622, end: 202208
  2. LENVIMA [Suspect]
     Active Substance: LENVATINIB
     Dosage: DOSE AND FREQUENCY UNKNOWN
     Route: 048
     Dates: start: 20230821, end: 20230913
  3. KEYTRUDA [Suspect]
     Active Substance: PEMBROLIZUMAB
     Indication: Endometrial cancer
     Route: 041
     Dates: start: 20220622, end: 20230823
  4. KEYTRUDA [Suspect]
     Active Substance: PEMBROLIZUMAB
     Route: 041
     Dates: start: 202308, end: 20230913
  5. LEVOTHYROXINE [Concomitant]
     Active Substance: LEVOTHYROXINE\LEVOTHYROXINE SODIUM
     Indication: Hypothyroidism
     Route: 048
  6. HERBAL NOS [Concomitant]
     Active Substance: HERBALS
     Indication: Decreased appetite
     Dosage: UNKNOWN DOSE AND FREQUENCY

REACTIONS (2)
  - Malignant neoplasm progression [Unknown]
  - Death [Fatal]

NARRATIVE: CASE EVENT DATE: 20231101
